FAERS Safety Report 25483884 (Version 1)
Quarter: 2025Q2

REPORT INFORMATION
  Report Type: Report from Study
  Country: US (occurrence: US)
  Receive Date: 20250626
  Receipt Date: 20250626
  Transmission Date: 20250716
  Serious: Yes (Other)
  Sender: PFIZER
  Company Number: US-PFIZER INC-PV202500074293

PATIENT
  Age: 16 Year
  Sex: Male

DRUGS (5)
  1. DOXORUBICIN HYDROCHLORIDE [Suspect]
     Active Substance: DOXORUBICIN HYDROCHLORIDE
     Indication: B-cell lymphoma
  2. RITUXIMAB [Concomitant]
     Active Substance: RITUXIMAB
     Indication: B-cell lymphoma
  3. CYCLOPHOSPHAMIDE [Concomitant]
     Active Substance: CYCLOPHOSPHAMIDE
     Indication: B-cell lymphoma
  4. VINCRISTINE [Concomitant]
     Active Substance: VINCRISTINE
     Indication: B-cell lymphoma
  5. PREDNISONE [Concomitant]
     Active Substance: PREDNISONE
     Indication: B-cell lymphoma

REACTIONS (1)
  - Cardiotoxicity [Unknown]
